FAERS Safety Report 11856508 (Version 1)
Quarter: 2015Q4

REPORT INFORMATION
  Report Type: Spontaneous
  Country: US (occurrence: None)
  Receive Date: 20151218
  Receipt Date: 20151218
  Transmission Date: 20160305
  Serious: Yes (Other)
  Sender: FDA-Public Use
  Company Number: None

PATIENT
  Age: 66 Year
  Sex: Female
  Weight: 72.58 kg

DRUGS (6)
  1. NITROFURANTOIN 100MG ALVOGEN [Suspect]
     Active Substance: NITROFURANTOIN
     Indication: URINARY TRACT INFECTION
     Dosage: 2 PILLS A DAY FOR 7 DAYS
     Route: 048
     Dates: start: 20151207, end: 20151213
  2. NITROFURANTOIN 100MG ALVOGEN [Suspect]
     Active Substance: NITROFURANTOIN
     Indication: HAEMATURIA
     Dosage: 2 PILLS A DAY FOR 7 DAYS
     Route: 048
     Dates: start: 20151207, end: 20151213
  3. MAGNESIUM [Concomitant]
     Active Substance: MAGNESIUM
  4. CRANBERRY WITH VIT. C AND VIT. D [Concomitant]
  5. VITAMIN D [Concomitant]
     Active Substance: CHOLECALCIFEROL
  6. DIPHENHYDRAMINE HCI [Concomitant]

REACTIONS (1)
  - Diarrhoea [None]

NARRATIVE: CASE EVENT DATE: 20151216
